FAERS Safety Report 15767180 (Version 1)
Quarter: 2018Q4

REPORT INFORMATION
  Report Type: Spontaneous
  Country: US (occurrence: US)
  Receive Date: 20181227
  Receipt Date: 20181227
  Transmission Date: 20190205
  Serious: Yes (Other)
  Sender: FDA-Public Use
  Company Number: US-UNICHEM PHARMACEUTICALS (USA) INC-UCM201812-000357

PATIENT
  Age: 68 Year
  Sex: Female
  Weight: 59.8 kg

DRUGS (6)
  1. GLUCOSAMINE [Concomitant]
     Active Substance: GLUCOSAMINE
  2. VITAMIN D [Concomitant]
     Active Substance: CHOLECALCIFEROL
  3. AMLODIPINE [Suspect]
     Active Substance: AMLODIPINE BESYLATE
     Indication: HYPERTENSION
  4. RAMIPRIL. [Concomitant]
     Active Substance: RAMIPRIL
  5. CALCIUM [Concomitant]
     Active Substance: CALCIUM
  6. ADVIL [Concomitant]
     Active Substance: IBUPROFEN
     Indication: FEELING OF RELAXATION

REACTIONS (1)
  - Breast cancer [Unknown]
